FAERS Safety Report 8299657-7 (Version None)
Quarter: 2012Q2

REPORT INFORMATION
  Report Type: 
  Country: None (occurrence: None)
  Receive Date: 20120419
  Receipt Date: 20120413
  Transmission Date: 20120825
  Serious: Yes (Hospitalization, Other)
  Sender: FDA-Public Use
  Company Number: US-ELI_LILLY_AND_COMPANY-US201111007210

PATIENT
  Sex: Female

DRUGS (2)
  1. FORTEO [Suspect]
     Indication: OSTEOPOROSIS
     Dosage: 20 UG, QD
     Dates: start: 20111001
  2. LUNESTA [Concomitant]

REACTIONS (8)
  - OLIGURIA [None]
  - AMNESIA [None]
  - WEIGHT INCREASED [None]
  - INJECTION SITE HAEMATOMA [None]
  - DRUG DOSE OMISSION [None]
  - INCOHERENT [None]
  - WAIST CIRCUMFERENCE INCREASED [None]
  - NAUSEA [None]
